FAERS Safety Report 9509312 (Version 1)
Quarter: 2013Q3

REPORT INFORMATION
  Report Type: Spontaneous
  Country: US (occurrence: US)
  Receive Date: 20130909
  Receipt Date: 20130909
  Transmission Date: 20140515
  Serious: No
  Sender: FDA-Public Use
  Company Number: US-BRISTOL-MYERS SQUIBB COMPANY-17313107

PATIENT
  Age: 2 Decade
  Sex: Female

DRUGS (2)
  1. ABILIFY [Suspect]
     Indication: MAJOR DEPRESSION
     Dosage: PREVIOUSLY TAKING 2MG ON 28SEP12,ALSO TOOK 2.5 MG AND 2 MG
  2. CELEXA [Concomitant]
     Indication: DEPRESSION

REACTIONS (2)
  - Tremor [Unknown]
  - Muscle twitching [Unknown]
